FAERS Safety Report 24041283 (Version 2)
Quarter: 2024Q3

REPORT INFORMATION
  Report Type: Spontaneous
  Country: US (occurrence: US)
  Receive Date: 20240702
  Receipt Date: 20240725
  Transmission Date: 20241016
  Serious: Yes (Other)
  Sender: ORGANON
  Company Number: US-ORGANON-O2407USA000054

PATIENT
  Age: 18 Year
  Sex: Female
  Weight: 55.329 kg

DRUGS (1)
  1. NEXPLANON [Suspect]
     Active Substance: ETONOGESTREL
     Indication: Menstrual cycle management
     Dosage: 1 IMPLANT (68 MG) (LEFT ARM)
     Route: 059
     Dates: start: 20230201

REACTIONS (3)
  - Menometrorrhagia [Not Recovered/Not Resolved]
  - Dysmenorrhoea [Not Recovered/Not Resolved]
  - Product use in unapproved indication [Unknown]

NARRATIVE: CASE EVENT DATE: 20231201
